FAERS Safety Report 25750691 (Version 1)
Quarter: 2025Q3

REPORT INFORMATION
  Report Type: Spontaneous
  Country: IN (occurrence: IN)
  Receive Date: 20250902
  Receipt Date: 20250902
  Transmission Date: 20251020
  Serious: Yes (Death)
  Sender: MYLAN
  Company Number: IN-MYLANLABS-2025M1073949

PATIENT
  Age: 24 Year
  Sex: Male

DRUGS (3)
  1. TACROLIMUS [Suspect]
     Active Substance: TACROLIMUS
     Indication: Liver transplant rejection
  2. MYCOPHENOLATE MOFETIL [Suspect]
     Active Substance: MYCOPHENOLATE MOFETIL
     Indication: Liver transplant rejection
  3. EVEROLIMUS [Suspect]
     Active Substance: EVEROLIMUS
     Indication: Liver transplant rejection
     Dosage: 1 MILLIGRAM, QD

REACTIONS (2)
  - Drug ineffective [Fatal]
  - Off label use [Unknown]
